FAERS Safety Report 6249666-4 (Version None)
Quarter: 2009Q2

REPORT INFORMATION
  Report Type: 
  Country: None (occurrence: None)
  Receive Date: 20090625
  Receipt Date: 20090619
  Transmission Date: 20091009
  Serious: Yes (Other)
  Sender: FDA-Public Use
  Company Number: 1000006949

PATIENT
  Age: 78 Year
  Sex: Female

DRUGS (3)
  1. NEBIVOLOL HCL [Suspect]
     Dosage: 5 MG (1 IN 1 D), ORAL
     Route: 048
     Dates: start: 20090101, end: 20090516
  2. ESCITALOPRAM [Suspect]
     Dates: start: 20090516, end: 20090516
  3. LENDORMIN (0.2 MILLIGRAM) [Suspect]
     Dosage: 0.25 MG, ORAL
     Route: 048
     Dates: start: 20090425, end: 20090516

REACTIONS (6)
  - ALTERED STATE OF CONSCIOUSNESS [None]
  - FALL [None]
  - HEAD INJURY [None]
  - MALAISE [None]
  - ORTHOSTATIC HYPOTENSION [None]
  - SYNCOPE [None]
